FAERS Safety Report 16369530 (Version 2)
Quarter: 2019Q2

REPORT INFORMATION
  Report Type: Spontaneous
  Country: JP (occurrence: JP)
  Receive Date: 20190530
  Receipt Date: 20190530
  Transmission Date: 20190711
  Serious: Yes (Hospitalization)
  Sender: FDA-Public Use
  Company Number: JP-ROCHE-2327516

PATIENT
  Age: 26 Year
  Sex: Female

DRUGS (4)
  1. ACTEMRA [Suspect]
     Active Substance: TOCILIZUMAB
     Indication: TAKAYASU^S ARTERITIS
     Route: 042
     Dates: start: 2016
  2. ACTEMRA [Suspect]
     Active Substance: TOCILIZUMAB
     Indication: OFF LABEL USE
  3. ACTEMRA [Suspect]
     Active Substance: TOCILIZUMAB
     Indication: OFF LABEL USE
     Route: 042
  4. ACTEMRA [Suspect]
     Active Substance: TOCILIZUMAB
     Indication: TAKAYASU^S ARTERITIS
     Route: 058
     Dates: start: 201612

REACTIONS (3)
  - Takayasu^s arteritis [Unknown]
  - Off label use [Unknown]
  - Intentional product misuse [Unknown]
